FAERS Safety Report 7311224-8 (Version None)
Quarter: 2011Q1

REPORT INFORMATION
  Report Type: 
  Country: None (occurrence: None)
  Receive Date: 20110224
  Receipt Date: 20110214
  Transmission Date: 20110831
  Serious: Yes (Other)
  Sender: FDA-Public Use
  Company Number: PY-ROCHE-755862

PATIENT
  Sex: Female
  Weight: 60 kg

DRUGS (3)
  1. CIPROTERONE [Concomitant]
     Indication: ANTIANDROGEN THERAPY
     Dosage: STOP DATE: 27 DECEMBER 2011.
     Route: 048
  2. DROSPIRENONE AND ETHINYL ESTRADIOL [Concomitant]
     Indication: CONTRACEPTION
     Route: 048
     Dates: end: 20110124
  3. ISOTRETINOIN [Suspect]
     Indication: ACNE
     Route: 048
     Dates: start: 20101223, end: 20110124

REACTIONS (2)
  - ABORTION SPONTANEOUS [None]
  - DRUG EXPOSURE DURING PREGNANCY [None]
